FAERS Safety Report 23396039 (Version 4)
Quarter: 2024Q1

REPORT INFORMATION
  Report Type: Spontaneous
  Country: FR (occurrence: FR)
  Receive Date: 20240112
  Receipt Date: 20240307
  Transmission Date: 20240410
  Serious: Yes (Hospitalization, Other)
  Sender: FDA-Public Use
  Company Number: FR-AFSSAPS-MP2023002402

PATIENT
  Age: 74 Year
  Sex: Male
  Weight: 80.5 kg

DRUGS (12)
  1. ACETAMINOPHEN [Suspect]
     Active Substance: ACETAMINOPHEN
     Indication: Pain
     Dosage: UNK
     Route: 048
     Dates: start: 20231215
  2. LANSOPRAZOLE [Suspect]
     Active Substance: LANSOPRAZOLE
     Indication: Product used for unknown indication
     Dosage: 15 MILLIGRAM, ONCE A DAY
     Route: 048
     Dates: start: 20231218, end: 20231223
  3. AMOXICILLIN [Suspect]
     Active Substance: AMOXICILLIN
     Indication: Enterococcal infection
     Dosage: 12 GRAM, ONCE A DAY
     Route: 042
     Dates: start: 20231218, end: 20231223
  4. CEFTRIAXONE [Suspect]
     Active Substance: CEFTRIAXONE\CEFTRIAXONE SODIUM
     Indication: Enterococcal infection
     Dosage: 4 GRAM, ONCE A DAY
     Route: 042
     Dates: start: 20231222, end: 20231223
  5. GENTAMICIN [Suspect]
     Active Substance: GENTAMICIN
     Indication: Enterococcal infection
     Dosage: UNK
     Route: 042
     Dates: start: 20231218, end: 20231222
  6. ONDANSETRON [Suspect]
     Active Substance: ONDANSETRON
     Indication: Large intestinal obstruction
     Dosage: 4 MILLIGRAM
     Route: 048
     Dates: start: 20231208, end: 20231227
  7. FUROSEMIDE [Concomitant]
     Active Substance: FUROSEMIDE
     Indication: Pulmonary embolism
     Dosage: 40 MILLIGRAM, ONCE A DAY
     Route: 048
     Dates: start: 20231208, end: 20231218
  8. LOVENOX [Concomitant]
     Active Substance: ENOXAPARIN SODIUM
     Indication: Pulmonary embolism
     Dosage: 0.8 MILLILITER, TWO TIMES A DAY
     Route: 058
     Dates: start: 20231222
  9. Macrogol 4000 arrow [Concomitant]
     Indication: Large intestinal obstruction
     Dosage: 10 GRAM
     Route: 048
     Dates: start: 20231208, end: 20231222
  10. Spasfon [Concomitant]
     Indication: Large intestinal obstruction
     Dosage: 80 MILLIGRAM
     Route: 048
     Dates: start: 20231208, end: 20231217
  11. POTASSIUM CHLORIDE [Concomitant]
     Active Substance: POTASSIUM CHLORIDE
     Indication: Large intestinal obstruction
     Dosage: 600 MILLIGRAM
     Route: 048
     Dates: start: 20231208, end: 20231217
  12. POLYETHYLENE GLYCOLS [Concomitant]
     Active Substance: POLYETHYLENE GLYCOLS
     Indication: Large intestinal obstruction
     Dosage: 10 GRAM
     Route: 048
     Dates: start: 20231208, end: 20231222

REACTIONS (2)
  - Epidermolysis [Not Recovered/Not Resolved]
  - Rash maculo-papular [Not Recovered/Not Resolved]

NARRATIVE: CASE EVENT DATE: 20231223
